FAERS Safety Report 21082332 (Version 1)
Quarter: 2022Q3

REPORT INFORMATION
  Report Type: Spontaneous
  Country: DE (occurrence: DE)
  Receive Date: 20220714
  Receipt Date: 20220714
  Transmission Date: 20221027
  Serious: Yes (Death)
  Sender: FDA-Public Use
  Company Number: DE-EMBRYOTOX-202104559

PATIENT
  Age: 37 Year
  Sex: Female
  Weight: 60 kg

DRUGS (7)
  1. VENLAFAXINE [Suspect]
     Active Substance: VENLAFAXINE HYDROCHLORIDE
     Indication: Depression
     Dosage: 225 [MG/D (UP TO 150 MG/D) ]/ REDUCTION TO 150 MG/D AT GW 23 1/7
     Dates: start: 20210120, end: 20210731
  2. QUETIAPINE [Suspect]
     Active Substance: QUETIAPINE
     Indication: Depression
     Dosage: 75 MILLIGRAM DAILY; 75 [MG/D (25-25-25) ]
     Dates: start: 20210323, end: 20210702
  3. LITHIUM CARBONATE [Suspect]
     Active Substance: LITHIUM CARBONATE
     Indication: Depression
     Dosage: 900 MILLIGRAM DAILY; 900 [MG/D (450-0-450) ]
     Dates: start: 20210422, end: 20210731
  4. tavor [Concomitant]
     Indication: Depression
     Dates: start: 20210421, end: 20210421
  5. FLECAINIDE [Concomitant]
     Active Substance: FLECAINIDE
     Indication: Tachycardia foetal
     Dosage: 800 MILLIGRAM DAILY; 800 [MG/D (BIS 400) ]
     Dates: start: 20210701, end: 20210730
  6. AMIODARONE [Concomitant]
     Active Substance: AMIODARONE
     Indication: Tachycardia foetal
     Dosage: TWO APPLICATIONS., UNIT DOSE: 2 DF
     Dates: start: 20210726, end: 20210730
  7. METOPROLOL SUCCINATE [Concomitant]
     Active Substance: METOPROLOL SUCCINATE
     Indication: Tachycardia foetal
     Dosage: 95 MILLIGRAM DAILY; 95 [MG/D (2X 47.5) ], METOPROLOLSUCCINAT
     Dates: start: 20210701, end: 20210730

REACTIONS (2)
  - Foetal death [Fatal]
  - Maternal exposure during pregnancy [Unknown]

NARRATIVE: CASE EVENT DATE: 20210120
